FAERS Safety Report 17834471 (Version 6)
Quarter: 2022Q4

REPORT INFORMATION
  Report Type: Report from Study
  Country: US (occurrence: US)
  Receive Date: 20200528
  Receipt Date: 20221026
  Transmission Date: 20230112
  Serious: Yes (Hospitalization)
  Sender: FDA-Public Use
  Company Number: US-ACORDA-ACO_157826_2019

PATIENT
  Age: 41 Year
  Sex: Female

DRUGS (4)
  1. AMPYRA [Suspect]
     Active Substance: DALFAMPRIDINE
     Indication: Gait disturbance
     Dosage: 10 MILLIGRAM, BID
     Route: 048
     Dates: start: 2010
  2. AMPYRA [Suspect]
     Active Substance: DALFAMPRIDINE
     Indication: Multiple sclerosis
  3. DALFAMPRIDINE [Suspect]
     Active Substance: DALFAMPRIDINE
     Indication: Gait disturbance
     Dosage: 10 MILLIGRAM, BID
     Route: 048
     Dates: start: 2019
  4. DALFAMPRIDINE [Suspect]
     Active Substance: DALFAMPRIDINE
     Indication: Multiple sclerosis

REACTIONS (11)
  - Dyskinesia [Recovered/Resolved]
  - Muscular weakness [Recovering/Resolving]
  - Dysstasia [Recovered/Resolved]
  - Feeling abnormal [Recovered/Resolved]
  - Product dose omission issue [Unknown]
  - Drug ineffective [Unknown]
  - Product dose omission issue [Unknown]
  - Therapy cessation [Unknown]
  - Therapy cessation [Unknown]
  - Product dose omission issue [Unknown]
  - Therapy cessation [Unknown]

NARRATIVE: CASE EVENT DATE: 20200101
